FAERS Safety Report 20355052 (Version 1)
Quarter: 2022Q1

REPORT INFORMATION
  Report Type: Spontaneous
  Country: FR (occurrence: FR)
  Receive Date: 20220120
  Receipt Date: 20220120
  Transmission Date: 20220423
  Serious: Yes (Other)
  Sender: FDA-Public Use
  Company Number: FR-ALVOGEN-2022-ALVOGEN-118132

PATIENT
  Age: 15 Year
  Sex: Male

DRUGS (2)
  1. VORICONAZOLE [Suspect]
     Active Substance: VORICONAZOLE
     Indication: Pneumonia fungal
  2. ETHAMBUTOL [Concomitant]
     Active Substance: ETHAMBUTOL HYDROCHLORIDE
     Indication: Pneumonia fungal
     Dosage: 22.2 MG/KG/DAY

REACTIONS (2)
  - Toxic optic neuropathy [Recovering/Resolving]
  - Neuropathy peripheral [Recovering/Resolving]
